FAERS Safety Report 9087119 (Version 1)
Quarter: 2013Q1

REPORT INFORMATION
  Report Type: Spontaneous
  Country: US (occurrence: US)
  Receive Date: 20130217
  Receipt Date: 20130217
  Transmission Date: 20140127
  Serious: Yes (Other)
  Sender: FDA-Public Use
  Company Number: US-JNJFOC-20130205467

PATIENT
  Age: 74 Year
  Sex: Female
  Weight: 68.04 kg

DRUGS (10)
  1. XARELTO [Suspect]
     Indication: ANTICOAGULANT THERAPY
     Route: 048
     Dates: start: 201301
  2. XARELTO [Suspect]
     Indication: ANTICOAGULANT THERAPY
     Route: 048
     Dates: start: 201212, end: 201301
  3. TYLENOL ANALGESIC UNKNOWN [Suspect]
     Route: 048
  4. TYLENOL ANALGESIC UNKNOWN [Suspect]
     Indication: PAIN
     Dosage: 2 TABLETS
     Route: 048
  5. METOPROLOL [Concomitant]
     Indication: BLOOD PRESSURE
     Route: 065
  6. FLECAINIDE [Concomitant]
     Indication: CARDIAC DISORDER
     Route: 065
  7. LEVOTHYROXINE [Concomitant]
     Indication: THYROID DISORDER
     Route: 065
  8. AMITRIPTYLINE [Concomitant]
     Indication: SLEEP DISORDER
     Route: 065
  9. AMITRIPTYLINE [Concomitant]
     Indication: DEPRESSION
     Route: 065
  10. FUROSEMIDE [Concomitant]
     Indication: DIURETIC THERAPY
     Route: 065

REACTIONS (2)
  - Headache [Recovering/Resolving]
  - Dizziness [Recovering/Resolving]
